FAERS Safety Report 23164386 (Version 2)
Quarter: 2024Q1

REPORT INFORMATION
  Report Type: Report from Study
  Country: JP (occurrence: JP)
  Receive Date: 20231109
  Receipt Date: 20240206
  Transmission Date: 20240410
  Serious: Yes (Other)
  Sender: FDA-Public Use
  Company Number: JP-ORPHANEU-2023007668

PATIENT

DRUGS (26)
  1. CARBAGLU [Suspect]
     Active Substance: CARGLUMIC ACID
     Indication: Propionic acidaemia
     Dosage: 200 MILLIGRAM, BID (DAILY DOSE: 148 MG/KG/DAY)
     Dates: start: 20210610, end: 20210618
  2. CARBAGLU [Suspect]
     Active Substance: CARGLUMIC ACID
     Dosage: 100 MILLIGRAM, BID (DAILY DOSE: 70 MG/KG/DAY)
     Dates: start: 20210618, end: 20210621
  3. CARBAGLU [Suspect]
     Active Substance: CARGLUMIC ACID
     Dosage: 250 MILLIGRAM, BID (DAILY DOSE: 50 MG/KG/DAY)
     Route: 048
     Dates: start: 20211116, end: 20220207
  4. CARBAGLU [Suspect]
     Active Substance: CARGLUMIC ACID
     Dosage: 200 MILLIGRAM, TID (DAILY DOSE: 46 MG/KG/DAY)
     Route: 048
     Dates: start: 20220208, end: 20220610
  5. CARBAGLU [Suspect]
     Active Substance: CARGLUMIC ACID
     Dosage: 200 MILLIGRAM, TID (DAILY DOSE: 35 MG/KG/DAY)
     Dates: start: 20220611, end: 20221011
  6. MEYLON [Concomitant]
     Active Substance: SODIUM BICARBONATE
     Indication: Disease complication
     Dosage: 3ML/ INJECTION
     Dates: start: 20210609, end: 20210609
  7. LEVOCARNITINE [Concomitant]
     Active Substance: LEVOCARNITINE
     Indication: Propionic acidaemia
     Dosage: 280MG/ INJECTION
     Dates: start: 20210609, end: 20210618
  8. AMPICILLIN SODIUM [Concomitant]
     Active Substance: AMPICILLIN SODIUM
     Indication: Infection prophylaxis
     Dosage: 260MG/ INJECTION
     Dates: start: 20210610, end: 20210614
  9. MIDAZOLAM HYDROCHLORIDE [Concomitant]
     Active Substance: MIDAZOLAM HYDROCHLORIDE
     Indication: Sedation
     Dosage: 5MG/ INJECTION
     Dates: start: 20210609, end: 20210624
  10. BUPHENYL [Concomitant]
     Active Substance: SODIUM PHENYLBUTYRATE
     Indication: Propionic acidaemia
     Dosage: 0.65G/ TUBE
     Dates: start: 20210610, end: 20210612
  11. LEVOCARNITINE [Concomitant]
     Active Substance: LEVOCARNITINE
     Indication: Propionic acidaemia
     Dosage: 750MG
     Dates: start: 20210618
  12. LEVOCARNITINE [Concomitant]
     Active Substance: LEVOCARNITINE
     Dosage: 2250MG/ ORAL
     Route: 048
     Dates: start: 20211210, end: 20220424
  13. LEVOCARNITINE [Concomitant]
     Active Substance: LEVOCARNITINE
     Dosage: 3000MG/ ORAL
     Route: 048
     Dates: start: 20220425
  14. LEVOCARNITINE [Concomitant]
     Active Substance: LEVOCARNITINE
     Dosage: 3500MG/ ORAL
     Route: 048
  15. FERRIC PYROPHOSPHATE [Concomitant]
     Active Substance: FERRIC PYROPHOSPHATE
     Indication: Disease complication
     Dosage: 3ML/ ORAL
     Route: 048
     Dates: start: 20211116
  16. FERRIC PYROPHOSPHATE [Concomitant]
     Active Substance: FERRIC PYROPHOSPHATE
     Dosage: 3ML/ ORAL
     Route: 048
     Dates: start: 20211210, end: 20220307
  17. SINGULAIR [Concomitant]
     Active Substance: MONTELUKAST SODIUM
     Indication: Disease complication
     Dosage: 4MG/ ORAL
     Route: 048
     Dates: start: 20211224
  18. SINGULAIR [Concomitant]
     Active Substance: MONTELUKAST SODIUM
     Dosage: 4MG/ ORAL
     Route: 048
  19. FLAGYL [Concomitant]
     Active Substance: METRONIDAZOLE\METRONIDAZOLE HYDROCHLORIDE
     Indication: Propionic acidaemia
     Dosage: 125MG/ ORAL
     Route: 048
     Dates: start: 20220104, end: 20220111
  20. ALBUTEROL SULFATE [Concomitant]
     Active Substance: ALBUTEROL SULFATE
     Indication: Asthma
     Dosage: 0.8ML/ INHALATION
     Dates: start: 20211220, end: 20211225
  21. INTAL [Concomitant]
     Active Substance: CROMOLYN SODIUM
     Indication: Asthma
     Dosage: 8ML/ INHALATION
     Dates: start: 20211220, end: 20211225
  22. CARBOCYSTEINE [Concomitant]
     Active Substance: CARBOCYSTEINE
     Indication: Nasopharyngitis
     Dosage: 330MG/ ORAL
     Route: 048
     Dates: start: 20211224, end: 20220103
  23. CARBOCYSTEINE [Concomitant]
     Active Substance: CARBOCYSTEINE
     Indication: Complication of device removal
     Dosage: 510MG/ ORAL
     Route: 048
     Dates: start: 20220812, end: 20220819
  24. AMBROXOL HYDROCHLORIDE [Concomitant]
     Active Substance: AMBROXOL HYDROCHLORIDE
     Indication: Nasopharyngitis
     Dosage: 10MG/ ORAL
     Route: 048
     Dates: start: 20211224, end: 20220103
  25. AMBROXOL HYDROCHLORIDE [Concomitant]
     Active Substance: AMBROXOL HYDROCHLORIDE
     Indication: Disease complication
     Dosage: 15MG/ ORAL
     Route: 048
     Dates: start: 20220812, end: 20220819
  26. XYZAL [Concomitant]
     Active Substance: LEVOCETIRIZINE DIHYDROCHLORIDE
     Indication: Hypersensitivity
     Dosage: 2.5ML/ORAL
     Route: 048
     Dates: start: 20220427, end: 20220427

REACTIONS (4)
  - Hyperammonaemia [Not Recovered/Not Resolved]
  - Hyperammonaemia [Not Recovered/Not Resolved]
  - Decreased appetite [Recovered/Resolved]
  - Vomiting [Recovered/Resolved]

NARRATIVE: CASE EVENT DATE: 20210629
